FAERS Safety Report 17231249 (Version 14)
Quarter: 2023Q2

REPORT INFORMATION
  Report Type: Report from Study
  Country: CA (occurrence: CA)
  Receive Date: 20200103
  Receipt Date: 20230427
  Transmission Date: 20230721
  Serious: Yes (Other)
  Sender: FDA-Public Use
  Company Number: NVSC2019CA083660

PATIENT
  Age: 38 Year
  Sex: Male

DRUGS (17)
  1. ERELZI [Suspect]
     Active Substance: ETANERCEPT-SZZS
     Indication: Psoriatic arthropathy
     Dosage: 50 MG, QW
     Route: 058
     Dates: start: 20191114, end: 20200220
  2. ERELZI [Suspect]
     Active Substance: ETANERCEPT-SZZS
     Dosage: UNK
     Route: 065
     Dates: start: 20200326
  3. ERELZI [Suspect]
     Active Substance: ETANERCEPT-SZZS
     Dosage: UNK
     Route: 065
     Dates: start: 202109
  4. ERELZI [Suspect]
     Active Substance: ETANERCEPT-SZZS
     Dosage: 50 MG
     Route: 058
  5. ERELZI [Suspect]
     Active Substance: ETANERCEPT-SZZS
     Dosage: 50 MG
     Route: 058
  6. PREDNISONE [Concomitant]
     Active Substance: PREDNISONE
     Indication: Product used for unknown indication
     Dosage: UNK
     Route: 065
  7. NAPROXEN [Concomitant]
     Active Substance: NAPROXEN
     Indication: Product used for unknown indication
     Dosage: UNK
     Route: 065
  8. ENBREL [Concomitant]
     Active Substance: ETANERCEPT
     Indication: Product used for unknown indication
     Dosage: UNK
     Route: 065
  9. IBUPROFEN [Concomitant]
     Active Substance: IBUPROFEN
     Indication: Product used for unknown indication
     Dosage: UNK
     Route: 065
  10. VITAMIN D3 [Concomitant]
     Active Substance: CHOLECALCIFEROL
     Indication: Product used for unknown indication
     Dosage: UNK UNK, QD (STRENGTH: 2000 UNIT)
     Route: 065
  11. METHYLCOBALAMIN [Concomitant]
     Active Substance: METHYLCOBALAMIN
     Indication: Product used for unknown indication
     Dosage: UNK, QD (VITAMIN B12)
     Route: 048
  12. VITAMINS [Concomitant]
     Active Substance: VITAMINS
     Indication: Product used for unknown indication
     Dosage: 2 DOSAGE FORM, QD
     Route: 048
  13. SYMBICORT [Concomitant]
     Active Substance: BUDESONIDE\FORMOTEROL FUMARATE DIHYDRATE
     Indication: Asthma
     Dosage: UNK UNK, BID (STRENGTH: 200)
     Route: 065
  14. ARAVA [Concomitant]
     Active Substance: LEFLUNOMIDE
     Indication: Product used for unknown indication
     Dosage: UNK
     Route: 065
  15. LEFLUNOMIDE [Concomitant]
     Active Substance: LEFLUNOMIDE
     Indication: Product used for unknown indication
     Dosage: UNK
     Route: 065
  16. VITAMINS [Concomitant]
     Active Substance: VITAMINS
     Indication: Product used for unknown indication
     Dosage: 2 DOSAGE FORM, QD
     Route: 065
  17. VITAMIN B12 [Concomitant]
     Active Substance: CYANOCOBALAMIN
     Indication: Product used for unknown indication
     Dosage: 5000 UG, QD
     Route: 048

REACTIONS (30)
  - Pulmonary thrombosis [Unknown]
  - Urethral stenosis [Unknown]
  - Urinary retention [Unknown]
  - Kidney infection [Unknown]
  - Chromaturia [Unknown]
  - Renal pain [Unknown]
  - Cellulitis [Recovering/Resolving]
  - Haematoma [Unknown]
  - International normalised ratio increased [Unknown]
  - Arthralgia [Unknown]
  - Pain [Unknown]
  - Obstructive sleep apnoea syndrome [Unknown]
  - Erythema [Unknown]
  - Soft tissue swelling [Unknown]
  - Osteoarthritis [Unknown]
  - Foot deformity [Unknown]
  - Enthesophyte [Unknown]
  - Wound [Unknown]
  - Gallbladder disorder [Recovered/Resolved]
  - Cholelithiasis [Unknown]
  - Arthritis [Unknown]
  - Spondylitis [Unknown]
  - Back pain [Unknown]
  - Injection site bruising [Unknown]
  - Psoriasis [Recovered/Resolved]
  - Cystitis [Unknown]
  - Bladder pain [Unknown]
  - Sinusitis [Unknown]
  - Lower respiratory tract infection [Unknown]
  - Headache [Recovered/Resolved]

NARRATIVE: CASE EVENT DATE: 20190101
